FAERS Safety Report 5714332-8 (Version None)
Quarter: 2008Q2

REPORT INFORMATION
  Report Type: 
  Country: None (occurrence: None)
  Receive Date: 20080421
  Receipt Date: 20080411
  Transmission Date: 20081010
  Serious: Yes (Death)
  Sender: FDA-Public Use
  Company Number: CLOF-1000123

PATIENT

DRUGS (1)
  1. CLOLAR [Suspect]
     Indication: ACUTE LEUKAEMIA

REACTIONS (2)
  - ACUTE LYMPHOCYTIC LEUKAEMIA [None]
  - DISEASE PROGRESSION [None]
